FAERS Safety Report 17785135 (Version 3)
Quarter: 2020Q2

REPORT INFORMATION
  Report Type: Report from Study
  Country: US (occurrence: US)
  Receive Date: 20200513
  Receipt Date: 20200527
  Transmission Date: 20200714
  Serious: Yes (Congenital Anomaly, Other)
  Sender: FDA-Public Use
  Company Number: US-GILEAD-2020-0465654

PATIENT
  Sex: Male
  Weight: .86 kg

DRUGS (2)
  1. TIVICAY [Suspect]
     Active Substance: DOLUTEGRAVIR SODIUM
     Indication: HIV INFECTION
     Dosage: UNK
     Route: 064
     Dates: start: 20200127
  2. EMTRICITABINE;TENOFOVIR DISOPROXIL FUMARATE [Suspect]
     Active Substance: EMTRICITABINE\TENOFOVIR DISOPROXIL FUMARATE
     Indication: HIV INFECTION
     Dosage: UNK
     Route: 064
     Dates: start: 20200127

REACTIONS (7)
  - Cryptorchism [Unknown]
  - Hypospadias [Unknown]
  - Scrotal disorder [Unknown]
  - Cytogenetic abnormality [Unknown]
  - Foetal growth restriction [Unknown]
  - Anal atresia [Unknown]
  - Foetal exposure during pregnancy [Recovered/Resolved]
